FAERS Safety Report 4713631-6 (Version None)
Quarter: 2005Q3

REPORT INFORMATION
  Report Type: 
  Country: None (occurrence: None)
  Receive Date: 20050712
  Receipt Date: 20050627
  Transmission Date: 20060218
  Serious: Yes (Death, Other)
  Sender: FDA-Public Use
  Company Number: GBS050617689

PATIENT
  Sex: Male

DRUGS (1)
  1. CYMBALTA [Suspect]
     Dates: start: 20050401

REACTIONS (4)
  - GASTROINTESTINAL HAEMORRHAGE [None]
  - LOSS OF CONSCIOUSNESS [None]
  - SUDDEN DEATH [None]
  - THROMBOSIS [None]
